FAERS Safety Report 5369053-0 (Version None)
Quarter: 2007Q2

REPORT INFORMATION
  Report Type: 
  Country: None (occurrence: None)
  Receive Date: 20070625
  Receipt Date: 20070618
  Transmission Date: 20071010
  Serious: Yes (Other)
  Sender: FDA-Public Use
  Company Number: FR-BRISTOL-MYERS SQUIBB COMPANY-13820915

PATIENT
  Sex: Female

DRUGS (2)
  1. AMOXICILLIN [Suspect]
     Indication: INFECTION PROPHYLAXIS
     Route: 048
  2. PENICILLIN [Suspect]
     Route: 042

REACTIONS (4)
  - BRADYCARDIA FOETAL [None]
  - CAESAREAN SECTION [None]
  - PREGNANCY [None]
  - URTICARIA [None]
